FAERS Safety Report 16019485 (Version 1)
Quarter: 2019Q1

REPORT INFORMATION
  Report Type: Spontaneous
  Country: US (occurrence: US)
  Receive Date: 20190228
  Receipt Date: 20190228
  Transmission Date: 20190418
  Serious: No
  Sender: FDA-Public Use
  Company Number: US-GE HEALTHCARE LIFE SCIENCES-2019CSU000896

PATIENT
  Age: 75 Year
  Sex: Female

DRUGS (2)
  1. VISIPAQUE [Suspect]
     Active Substance: IODIXANOL
     Indication: SKIN TEST POSITIVE
     Dosage: UNK UNK, SINGLE
     Route: 023
     Dates: start: 201812, end: 201812
  2. VISIPAQUE [Suspect]
     Active Substance: IODIXANOL
     Indication: HYPERSENSITIVITY

REACTIONS (1)
  - Skin test positive [Recovered/Resolved]

NARRATIVE: CASE EVENT DATE: 201812
